FAERS Safety Report 13908001 (Version 1)
Quarter: 2017Q3

REPORT INFORMATION
  Report Type: Spontaneous
  Country: US (occurrence: US)
  Receive Date: 20170825
  Receipt Date: 20170825
  Transmission Date: 20171127
  Serious: No
  Sender: FDA-Public Use
  Company Number: US-ROCHE-1113551

PATIENT
  Sex: Male

DRUGS (5)
  1. PAXIL [Concomitant]
     Active Substance: PAROXETINE HYDROCHLORIDE
  2. CENTRUM [Concomitant]
     Active Substance: VITAMINS
  3. NUTROPIN [Suspect]
     Active Substance: SOMATROPIN
     Indication: DWARFISM
     Route: 065
     Dates: start: 200207
  4. NORDITROPIN [Suspect]
     Active Substance: SOMATROPIN
     Indication: PRODUCT USED FOR UNKNOWN INDICATION
     Route: 065
  5. XANAX [Concomitant]
     Active Substance: ALPRAZOLAM

REACTIONS (12)
  - Syncope [Unknown]
  - Feeling abnormal [Unknown]
  - Depression [Unknown]
  - Fatigue [Unknown]
  - Anxiety [Unknown]
  - Feeling hot [Unknown]
  - Drug ineffective [Unknown]
  - Dizziness [Unknown]
  - Weight decreased [Unknown]
  - Insomnia [Unknown]
  - Poor quality sleep [Unknown]
  - Muscle atrophy [Unknown]
